FAERS Safety Report 6301977-X (Version None)
Quarter: 2009Q3

REPORT INFORMATION
  Report Type: 
  Country: None (occurrence: None)
  Receive Date: 20090805
  Receipt Date: 20090729
  Transmission Date: 20100115
  Serious: Yes (Other)
  Sender: FDA-Public Use
  Company Number: 2009S1005991

PATIENT

DRUGS (1)
  1. PHOSPHOSODA FLAVOR NOT SPECIFIED [Suspect]
     Dosage: PO
     Route: 048
     Dates: start: 20040308

REACTIONS (1)
  - RENAL FAILURE CHRONIC [None]
